FAERS Safety Report 23101559 (Version 2)
Quarter: 2023Q4

REPORT INFORMATION
  Report Type: Report from Study
  Country: BR (occurrence: BR)
  Receive Date: 20231025
  Receipt Date: 20231102
  Transmission Date: 20240109
  Serious: Yes (Hospitalization)
  Sender: FDA-Public Use
  Company Number: BR-CELLTRION INC.-2023BR020549

PATIENT

DRUGS (1)
  1. INFLIXIMAB [Suspect]
     Active Substance: INFLIXIMAB
     Indication: Ankylosing spondylitis
     Dosage: UNK
     Route: 042
     Dates: start: 20220214

REACTIONS (4)
  - Accident [Unknown]
  - Product availability issue [Unknown]
  - Therapy interrupted [Unknown]
  - Intentional dose omission [Unknown]
